FAERS Safety Report 5146241-X (Version None)
Quarter: 2006Q4

REPORT INFORMATION
  Report Type: 
  Country: None (occurrence: None)
  Receive Date: 20061106
  Receipt Date: 20061106
  Transmission Date: 20070319
  Serious: Yes (Death, Hospitalization)
  Sender: FDA-Public Use
  Company Number: None

PATIENT
  Sex: Male
  Weight: 50.48 kg

DRUGS (3)
  1. CISPLATIN [Suspect]
     Dosage: 45 MG
  2. ERBITUX [Suspect]
     Dosage: 361 MG
  3. CAMPTOSAR [Suspect]
     Dosage: 94 MG

REACTIONS (12)
  - ABDOMINAL DISTENSION [None]
  - FAILURE TO THRIVE [None]
  - GASTROINTESTINAL DISORDER [None]
  - HYPERKALAEMIA [None]
  - LARGE INTESTINE PERFORATION [None]
  - LIVER DISORDER [None]
  - MALNUTRITION [None]
  - NEUTROPENIA [None]
  - OBSTRUCTION [None]
  - ORAL INTAKE REDUCED [None]
  - PAIN [None]
  - PNEUMATOSIS [None]
